FAERS Safety Report 11219132 (Version 4)
Quarter: 2015Q3

REPORT INFORMATION
  Report Type: Report from Study
  Country: JP (occurrence: JP)
  Receive Date: 20150625
  Receipt Date: 20150818
  Transmission Date: 20151125
  Serious: Yes (Life-Threatening, Hospitalization, Other)
  Sender: FDA-Public Use
  Company Number: JP-MUNDIPHARMA DS AND PHARMACOVIGILANCE-GBR-2015-0029114

PATIENT
  Age: 14 Year
  Sex: Female

DRUGS (57)
  1. ROPION [Suspect]
     Active Substance: FLURBIPROFEN AXETIL
     Indication: PROPHYLAXIS
     Dosage: UNK
     Route: 065
     Dates: start: 20130716, end: 20130824
  2. DALTEPARIN SODIUM [Suspect]
     Active Substance: DALTEPARIN SODIUM
     Indication: PROPHYLAXIS
     Dosage: UNK UNK, DAILY
     Route: 065
     Dates: start: 20130714, end: 20130729
  3. FUNGUARD [Suspect]
     Active Substance: MICAFUNGIN SODIUM
     Indication: SEPSIS
     Dosage: UNK UNK, DAILY
     Route: 065
     Dates: start: 20130714, end: 20130828
  4. LASIX [Suspect]
     Active Substance: FUROSEMIDE
     Indication: GENERALISED OEDEMA
     Dosage: UNK
     Route: 065
     Dates: start: 20130714
  5. ALBUMIN [Suspect]
     Active Substance: ALBUMIN (HUMAN)
     Indication: HYPOALBUMINAEMIA
  6. ZOSYN [Suspect]
     Active Substance: PIPERACILLIN SODIUM\TAZOBACTAM SODIUM
     Indication: SEPSIS
     Dosage: UNK UNK, DAILY
     Route: 065
     Dates: start: 20130714, end: 20130925
  7. ADONA                              /00056903/ [Suspect]
     Active Substance: CARBAZOCHROME SODIUM SULFONATE
     Indication: ORAL DISORDER
     Dosage: UNK UNK, DAILY
     Route: 065
     Dates: start: 20130720, end: 20130729
  8. DORMICUM                           /00634101/ [Suspect]
     Active Substance: MIDAZOLAM\MIDAZOLAM HYDROCHLORIDE
     Indication: PROPHYLAXIS
     Dosage: UNK
     Route: 065
     Dates: start: 20130730, end: 20130823
  9. ESLAX [Suspect]
     Active Substance: ROCURONIUM BROMIDE
     Indication: PROPHYLAXIS
     Dosage: UNK UNK, DAILY
     Route: 065
     Dates: start: 20130801, end: 20130801
  10. POLYMYXIN B SULFATE. [Suspect]
     Active Substance: POLYMYXIN B SULFATE
     Indication: PROPHYLAXIS
     Dosage: UNK UNK, DAILY
     Route: 048
     Dates: start: 20130718, end: 20130810
  11. OMEPRAL                            /00661201/ [Suspect]
     Active Substance: OMEPRAZOLE
     Indication: GASTROINTESTINAL DISORDER
     Dosage: UNK UNK, DAILY
     Route: 065
     Dates: start: 20130720, end: 20130924
  12. HANP [Suspect]
     Active Substance: CARPERITIDE
     Indication: HYPERTENSION
     Dosage: UNK
     Route: 065
     Dates: start: 20130730, end: 20130916
  13. HEPARIN SODIUM. [Suspect]
     Active Substance: HEPARIN SODIUM
     Indication: PROPHYLAXIS
     Dosage: UNK UNK, DAILY
     Route: 065
     Dates: start: 20130730, end: 20130807
  14. PRECEDEX [Suspect]
     Active Substance: DEXMEDETOMIDINE HYDROCHLORIDE
     Indication: PROPHYLAXIS
     Dosage: UNK
     Route: 065
     Dates: start: 20130731, end: 20130823
  15. URSO [Suspect]
     Active Substance: URSODIOL
     Indication: PROPHYLAXIS
     Dosage: UNK UNK, DAILY
     Route: 048
     Dates: start: 20130718, end: 20130926
  16. AMLODIPINE BESYLATE. [Suspect]
     Active Substance: AMLODIPINE BESYLATE
     Indication: HYPERTENSION
     Dosage: UNK UNK, DAILY
     Route: 048
     Dates: start: 20130714
  17. ALDACTONE A [Suspect]
     Active Substance: SPIRONOLACTONE
     Indication: RENAL IMPAIRMENT
     Dosage: UNK UNK, DAILY
     Route: 048
     Dates: start: 20130820
  18. BENAMBAX [Concomitant]
     Active Substance: PENTAMIDINE
     Indication: PROPHYLAXIS
     Dosage: UNK UNK, DAILY
     Route: 065
     Dates: start: 20130814, end: 20130926
  19. VENILON [Suspect]
     Active Substance: HUMAN IMMUNOGLOBULIN G
     Indication: PROPHYLAXIS
     Dosage: UNK UNK, DAILY
     Route: 065
     Dates: start: 20130718, end: 20130926
  20. CHLOR-TRIMETON [Suspect]
     Active Substance: CHLORPHENIRAMINE MALEATE
     Indication: PROPHYLAXIS
     Dosage: UNK
     Route: 065
     Dates: start: 20130722, end: 20130904
  21. TEICOPLANIN [Suspect]
     Active Substance: TEICOPLANIN
     Indication: PROPHYLAXIS
  22. PROGRAF [Suspect]
     Active Substance: TACROLIMUS\TACROLIMUS ANHYDROUS
     Indication: GRAFT VERSUS HOST DISEASE
  23. BRIDION [Suspect]
     Active Substance: SUGAMMADEX
     Indication: PROPHYLAXIS
     Dosage: UNK UNK, DAILY
     Route: 065
     Dates: start: 20130801, end: 20130801
  24. ZOVIRAX [Suspect]
     Active Substance: ACYCLOVIR
     Indication: PROPHYLAXIS
     Dosage: UNK UNK, DAILY
     Route: 048
     Dates: start: 20130718, end: 20130926
  25. SAMSCA [Suspect]
     Active Substance: TOLVAPTAN
     Indication: RENAL IMPAIRMENT
     Dosage: UNK UNK, DAILY
     Route: 048
     Dates: start: 20130820, end: 20130905
  26. NICARDIPINE HYDROCHLORIDE. [Suspect]
     Active Substance: NICARDIPINE HYDROCHLORIDE
     Indication: HYPERTENSION
     Dosage: UNK
     Route: 065
     Dates: start: 20130714, end: 20130913
  27. PROGRAF [Suspect]
     Active Substance: TACROLIMUS\TACROLIMUS ANHYDROUS
     Indication: PROPHYLAXIS
     Dosage: UNK
     Route: 065
     Dates: start: 20130714, end: 20130925
  28. ALBUMIN [Suspect]
     Active Substance: ALBUMIN (HUMAN)
     Indication: GENERALISED OEDEMA
  29. ANTHROBIN P [Suspect]
     Active Substance: ANTITHROMBIN III HUMAN
     Indication: ABNORMAL CLOTTING FACTOR
     Dosage: UNK UNK, DAILY
     Route: 065
     Dates: start: 20130715, end: 20130812
  30. HUMULIN N [Suspect]
     Active Substance: INSULIN HUMAN
     Indication: HYPERGLYCAEMIA
     Dosage: UNK
     Route: 065
     Dates: start: 20130730, end: 20130913
  31. DORMICUM                           /00634101/ [Suspect]
     Active Substance: MIDAZOLAM\MIDAZOLAM HYDROCHLORIDE
     Dosage: UNK
     Route: 065
     Dates: start: 20130730, end: 20130807
  32. ATARAX-P                           /00058402/ [Concomitant]
     Active Substance: HYDROXYZINE HYDROCHLORIDE
     Indication: PROPHYLAXIS
     Dosage: UNK
     Route: 065
     Dates: start: 20130808, end: 20130925
  33. SERENACE [Concomitant]
     Active Substance: HALOPERIDOL
     Indication: PROPHYLAXIS
     Dosage: UNK UNK, DAILY
     Route: 065
     Dates: start: 20130808, end: 20130808
  34. OXYCODONE HYDROCHLORIDE. [Suspect]
     Active Substance: OXYCODONE HYDROCHLORIDE
     Indication: NEUROPATHY PERIPHERAL
     Dosage: UNK
     Route: 065
     Dates: start: 20130714, end: 20130729
  35. NEUTROGIN [Suspect]
     Active Substance: LENOGRASTIM
     Indication: PROPHYLAXIS
     Dosage: UNK UNK, DAILY
     Route: 065
     Dates: start: 20130715, end: 20130808
  36. LANSOPRAZOLE. [Suspect]
     Active Substance: LANSOPRAZOLE
     Indication: GASTROINTESTINAL DISORDER
     Dosage: UNK UNK, DAILY
     Route: 048
     Dates: start: 20130714, end: 20130729
  37. FINIBAX [Suspect]
     Active Substance: DORIPENEM MONOHYDRATE
     Indication: SEPSIS
     Dosage: 1 G, TID
     Route: 041
     Dates: start: 20130728, end: 20130830
  38. LASIX [Suspect]
     Active Substance: FUROSEMIDE
     Indication: RENAL IMPAIRMENT
     Dosage: UNK
     Route: 048
     Dates: start: 20130821
  39. OLIVES K [Suspect]
     Active Substance: LIDOCAINE HYDROCHLORIDE
     Indication: NEUROPATHY PERIPHERAL
     Dosage: UNK UNK, DAILY
     Route: 065
     Dates: start: 20130714, end: 20130819
  40. KAYTWO N [Suspect]
     Active Substance: MENATETRENONE
     Indication: ABNORMAL CLOTTING FACTOR
     Dosage: UNK UNK, DAILY
     Route: 065
     Dates: start: 20130720, end: 20130814
  41. SOLU-MEDROL [Suspect]
     Active Substance: METHYLPREDNISOLONE SODIUM SUCCINATE
     Indication: CAPILLARY LEAK SYNDROME
     Dosage: UNK UNK, DAILY
     Route: 065
     Dates: start: 20130729, end: 20130813
  42. PANTOL                             /00223901/ [Suspect]
     Active Substance: PANTHENOL
     Indication: ILEUS PARALYTIC
     Dosage: UNK UNK, DAILY
     Route: 065
     Dates: start: 20130802, end: 20130906
  43. HANP [Suspect]
     Active Substance: CARPERITIDE
     Dosage: UNK
     Route: 065
     Dates: start: 20130730, end: 20130802
  44. VFEND [Suspect]
     Active Substance: VORICONAZOLE
     Indication: PROPHYLAXIS
     Dosage: UNK UNK, DAILY
     Route: 065
     Dates: start: 20130828, end: 20130928
  45. INTRALIPOS [Suspect]
     Active Substance: SOYBEAN OIL
     Indication: MALNUTRITION
     Dosage: UNK UNK, DAILY
     Route: 065
     Dates: start: 20130820, end: 20130822
  46. BENECID [Suspect]
     Active Substance: PROBENECID
     Indication: RENAL IMPAIRMENT
     Dosage: UNK UNK, DAILY
     Route: 048
     Dates: start: 20130820
  47. TRYPTANOL                          /00002202/ [Suspect]
     Active Substance: AMITRIPTYLINE
     Indication: NEUROPATHY PERIPHERAL
     Dosage: UNK UNK, DAILY
     Route: 048
     Dates: start: 20130714, end: 20130729
  48. LYRICA [Suspect]
     Active Substance: PREGABALIN
     Indication: NEUROPATHY PERIPHERAL
     Dosage: UNK UNK, DAILY
     Route: 048
     Dates: start: 20130714
  49. CALONAL [Concomitant]
     Active Substance: ACETAMINOPHEN
     Indication: PROPHYLAXIS
     Dosage: UNK
     Route: 048
     Dates: start: 20130808, end: 20130808
  50. MEROPEN                            /01250502/ [Suspect]
     Active Substance: MEROPENEM
     Indication: SEPSIS
     Dosage: UNK UNK, DAILY
     Route: 065
     Dates: start: 20130715, end: 20130728
  51. FENTANYL. [Suspect]
     Active Substance: FENTANYL
     Indication: PROPHYLAXIS
     Dosage: UNK
     Route: 065
     Dates: start: 20130730, end: 20130823
  52. POTASSIUM CANRENOATE [Suspect]
     Active Substance: CANRENOATE POTASSIUM
     Indication: RENAL IMPAIRMENT
     Dosage: UNK UNK, DAILY
     Route: 065
     Dates: start: 20130820, end: 20130820
  53. DROLEPTAN [Concomitant]
     Active Substance: DROPERIDOL
     Indication: PROPHYLAXIS
     Dosage: UNK UNK, DAILY
     Route: 065
     Dates: start: 20130808, end: 20130808
  54. TEICOPLANIN [Suspect]
     Active Substance: TEICOPLANIN
     Indication: SEPSIS
     Dosage: UNK
     Route: 065
     Dates: start: 20130717, end: 20130823
  55. ALBUMIN [Suspect]
     Active Substance: ALBUMIN (HUMAN)
     Indication: CAPILLARY LEAK SYNDROME
     Dosage: UNK
     Route: 065
     Dates: start: 20130714, end: 20130821
  56. SOLU-MEDROL [Suspect]
     Active Substance: METHYLPREDNISOLONE SODIUM SUCCINATE
     Indication: GRAFT VERSUS HOST DISEASE
  57. MUCODYNE [Suspect]
     Active Substance: CARBOCYSTEINE
     Indication: PNEUMONIA
     Dosage: UNK UNK, DAILY
     Route: 048
     Dates: start: 20130714, end: 20130729

REACTIONS (10)
  - Graft versus host disease [Recovering/Resolving]
  - Pneumothorax [Recovered/Resolved]
  - Hyperglycaemia [Not Recovered/Not Resolved]
  - Diarrhoea [Recovering/Resolving]
  - Ileus paralytic [Recovered/Resolved]
  - Respiratory disorder [Recovering/Resolving]
  - Thrombotic microangiopathy [Not Recovered/Not Resolved]
  - Hepatic function abnormal [Recovered/Resolved]
  - Cytomegalovirus viraemia [Recovered/Resolved]
  - Adenovirus infection [Recovering/Resolving]

NARRATIVE: CASE EVENT DATE: 20130729
